FAERS Safety Report 9527677 (Version 2)
Quarter: 2013Q2

REPORT INFORMATION
  Report Type: Spontaneous
  Country: US (occurrence: None)
  Receive Date: 20130314
  Receipt Date: 20130606
  Transmission Date: 20140414
  Serious: Yes (Other)
  Sender: FDA-Public Use
  Company Number: 2013PROUSA02500

PATIENT
  Age: 65 Year
  Sex: Male
  Weight: 97.1 kg

DRUGS (11)
  1. PROVENGE [Suspect]
     Indication: PROSTATE CANCER METASTATIC
     Route: 042
     Dates: start: 20121026, end: 20121026
  2. LUPRON (LEUPRORELIN ACETATE) [Concomitant]
  3. ZOMETA (ZOLEDRONIC ACID) [Concomitant]
  4. PREDNISONE (PREDNISONE) [Concomitant]
  5. TOPROL (METOPROLOL SUCCINATE) [Concomitant]
  6. FUROSEMIDE (FUROSEMIDE) [Concomitant]
  7. COUMADIN (WARFARIN SODIUM) [Concomitant]
  8. POTASSIUM CHLORIDE (POTASSIUM CHLORIDE) [Concomitant]
  9. HYDROCODONE BITARTRATE AND ACETAMINOPHEN (HYDROCODONE BITARTRATE, PARACETAMOL) [Concomitant]
  10. CRESTOR (ROSUVASTATIN CALCIUM) [Concomitant]
  11. CENTRUM SILVER (ASCORBIC ACID, CALCIUM, MINERALS NOS, RETINOL, TOCOPHERYL ACETATE, VITAMIN B NOS, VITAMINS NOS, ZINC) [Concomitant]

REACTIONS (7)
  - Anaemia [None]
  - Rectal haemorrhage [None]
  - Renal failure chronic [None]
  - Bone pain [None]
  - Prostatic specific antigen increased [None]
  - Constipation [None]
  - Pain [None]
